FAERS Safety Report 5006497-0 (Version None)
Quarter: 2006Q2

REPORT INFORMATION
  Report Type: 
  Country: None (occurrence: None)
  Receive Date: 20060519
  Receipt Date: 20060510
  Transmission Date: 20061013
  Serious: Yes (Hospitalization)
  Sender: FDA-Public Use
  Company Number: CA-JNJFOC-20060502503

PATIENT
  Sex: Female
  Weight: 52.8 kg

DRUGS (1)
  1. REMICADE [Suspect]
     Indication: RHEUMATOID ARTHRITIS
     Dosage: 3 INFUSIONS
     Route: 042

REACTIONS (5)
  - BACK PAIN [None]
  - JOINT SWELLING [None]
  - PAIN [None]
  - PYREXIA [None]
  - RASH VESICULAR [None]
